FAERS Safety Report 10676499 (Version 2)
Quarter: 2014Q4

REPORT INFORMATION
  Report Type: Report from Study
  Country: US (occurrence: US)
  Receive Date: 20141226
  Receipt Date: 20141226
  Transmission Date: 20150529
  Serious: Yes (Death, Hospitalization)
  Sender: FDA-Public Use
  Company Number: US-ROCHE-1026502

PATIENT
  Age: 60 Year
  Sex: Female
  Weight: 95 kg

DRUGS (3)
  1. CISPLATIN. [Suspect]
     Active Substance: CISPLATIN
     Indication: SMALL CELL LUNG CANCER
     Dosage: 152 MG OVER 2 HOURS ON DAY 1; CYCLES 1-4
     Route: 042
     Dates: start: 20110629, end: 20110831
  2. VISMODEGIB [Suspect]
     Active Substance: VISMODEGIB
     Indication: SMALL CELL LUNG CANCER
     Dosage: CYCLES 1-5+
     Route: 048
     Dates: start: 20110629, end: 20111023
  3. ETOPOSIDE. [Suspect]
     Active Substance: ETOPOSIDE
     Indication: SMALL CELL LUNG CANCER
     Dosage: 200 MG OVER 2 HOURS ON DAYS 1-3; CYCLES 1-4
     Route: 042
     Dates: start: 20110629, end: 20110902

REACTIONS (9)
  - Cough [Unknown]
  - Respiratory failure [Unknown]
  - Neutrophil count decreased [Unknown]
  - Dyspnoea [Unknown]
  - Hypoxia [Unknown]
  - Non-cardiac chest pain [Unknown]
  - Hypokalaemia [Recovering/Resolving]
  - Disease progression [Fatal]
  - Hypertension [Unknown]

NARRATIVE: CASE EVENT DATE: 20111025
